FAERS Safety Report 11807472 (Version 1)
Quarter: 2015Q4

REPORT INFORMATION
  Report Type: Spontaneous
  Country: US (occurrence: US)
  Receive Date: 20151207
  Receipt Date: 20151207
  Transmission Date: 20160305
  Serious: No
  Sender: FDA-Public Use
  Company Number: US-ASTRAZENECA-2015SF20293

PATIENT
  Sex: Female

DRUGS (3)
  1. NEXIUM [Suspect]
     Active Substance: ESOMEPRAZOLE MAGNESIUM
     Route: 048
  2. PRILOSEC [Suspect]
     Active Substance: OMEPRAZOLE MAGNESIUM
     Indication: PROPHYLAXIS
     Route: 048
  3. CARAFATE [Suspect]
     Active Substance: SUCRALFATE
     Route: 065

REACTIONS (6)
  - Ulcer haemorrhage [Unknown]
  - Off label use [Unknown]
  - Gastric haemorrhage [Unknown]
  - Drug ineffective [Unknown]
  - Gastric ulcer [Unknown]
  - Product use issue [Unknown]
